FAERS Safety Report 9769495 (Version 1)
Quarter: 2013Q4

REPORT INFORMATION
  Report Type: Spontaneous
  Country: US (occurrence: US)
  Receive Date: 20131218
  Receipt Date: 20131218
  Transmission Date: 20140711
  Serious: No
  Sender: FDA-Public Use
  Company Number: US-SHIONOGI, INC-2013000278

PATIENT
  Age: 52 Year
  Sex: Female
  Weight: 63.04 kg

DRUGS (4)
  1. OSPHENA [Suspect]
     Indication: DYSPAREUNIA
     Dosage: 60 MG, QD
     Route: 048
     Dates: start: 20130815, end: 20130906
  2. MULTIVITAMIN [Concomitant]
     Indication: PRODUCT USED FOR UNKNOWN INDICATION
     Dosage: UNK
     Route: 065
  3. CITRICAL [Concomitant]
     Indication: PRODUCT USED FOR UNKNOWN INDICATION
     Dosage: UNK
     Route: 065
  4. DEHYDROEPIANDROSTERONE [Concomitant]
     Indication: DYSPAREUNIA
     Dosage: UNK
     Route: 067

REACTIONS (2)
  - Postmenopausal haemorrhage [Recovered/Resolved]
  - Muscle spasms [Recovered/Resolved]
